FAERS Safety Report 4952150-9 (Version None)
Quarter: 2006Q1

REPORT INFORMATION
  Report Type: 
  Country: None (occurrence: None)
  Receive Date: 20060323
  Receipt Date: 20060315
  Transmission Date: 20060701
  Serious: Yes (Other)
  Sender: FDA-Public Use
  Company Number: PHNU2006AU01354

PATIENT
  Age: 60 Year
  Sex: Female

DRUGS (8)
  1. TEGRETOL [Suspect]
     Dosage: 200 MG, BID
     Route: 048
  2. SOMAC [Concomitant]
  3. EVISTA [Concomitant]
  4. OSTELIN [Concomitant]
  5. ENDEP [Concomitant]
  6. LYRICA [Concomitant]
  7. ACETAMINOPHEN [Concomitant]
  8. ENDONE [Concomitant]

REACTIONS (3)
  - DIARRHOEA [None]
  - IRRITABLE BOWEL SYNDROME [None]
  - STOMACH DISCOMFORT [None]
